FAERS Safety Report 16006708 (Version 1)
Quarter: 2019Q1

REPORT INFORMATION
  Report Type: Spontaneous
  Country: ES (occurrence: ES)
  Receive Date: 20190226
  Receipt Date: 20190226
  Transmission Date: 20190418
  Serious: Yes (Other)
  Sender: FDA-Public Use
  Company Number: ES-MYLANLABS-2019M1016083

PATIENT
  Age: 77 Year
  Sex: Male

DRUGS (5)
  1. CITALOPRAM RATIOPHARM [Suspect]
     Active Substance: CITALOPRAM HYDROBROMIDE
     Indication: DEPRESSION
     Dosage: 20 MILLIGRAM, QD(1/24H)
     Route: 048
     Dates: start: 20180105, end: 20180730
  2. LORAZEPAM. [Concomitant]
     Active Substance: LORAZEPAM
     Indication: DEPRESSION
     Dosage: 1 MILLIGRAM, BID(1/12H)
     Route: 048
     Dates: start: 20150422
  3. ENALAPRIL [Concomitant]
     Active Substance: ENALAPRIL
     Indication: HYPERTENSION
     Dosage: 20 MILLIGRAM, QD(2/24H)
     Route: 048
     Dates: start: 20140120
  4. RIVASTIGMINE. [Suspect]
     Active Substance: RIVASTIGMINE
     Indication: COGNITIVE DISORDER
     Dosage: RIVASTIGMINA 4.6 UN PARCHE AL D?A DURANTE 1 MES
     Route: 062
     Dates: start: 20180604
  5. OMEPRAZOL                          /00661201/ [Concomitant]
     Active Substance: OMEPRAZOLE
     Indication: OESOPHAGITIS
     Dosage: 40 MILLIGRAM, QD(1/24H)
     Route: 048

REACTIONS (5)
  - Gait disturbance [Recovered/Resolved]
  - Hyponatraemia [Recovered/Resolved]
  - Disorientation [Recovered/Resolved]
  - Dizziness [Recovered/Resolved]
  - Asthenia [Unknown]

NARRATIVE: CASE EVENT DATE: 201807
